FAERS Safety Report 5310847-5 (Version None)
Quarter: 2007Q2

REPORT INFORMATION
  Report Type: 
  Country: None (occurrence: None)
  Receive Date: 20070428
  Receipt Date: 20070424
  Transmission Date: 20071010
  Serious: Yes (Other)
  Sender: FDA-Public Use
  Company Number: BR-PFIZER INC-2007033342

PATIENT
  Sex: Female
  Weight: 60 kg

DRUGS (2)
  1. FRONTAL [Suspect]
     Indication: ANXIETY
     Dosage: DAILY DOSE:1MG
     Route: 048
  2. CRESTOR [Concomitant]
     Route: 048

REACTIONS (1)
  - CATARACT [None]
